FAERS Safety Report 20782529 (Version 3)
Quarter: 2025Q1

REPORT INFORMATION
  Report Type: Spontaneous
  Country: GB (occurrence: GB)
  Receive Date: 20220504
  Receipt Date: 20250314
  Transmission Date: 20250409
  Serious: Yes (Hospitalization, Other)
  Sender: VERTEX
  Company Number: GB-VERTEX PHARMACEUTICALS-2022-001903

PATIENT
  Age: 31 Year
  Sex: Female
  Weight: 47 kg

DRUGS (10)
  1. ELEXACAFTOR\IVACAFTOR\TEZACAFTOR [Suspect]
     Active Substance: ELEXACAFTOR\IVACAFTOR\TEZACAFTOR
     Indication: Cystic fibrosis
     Dosage: 2 TABS ONCE DAILY, QD
     Route: 048
     Dates: start: 20201026
  2. KALYDECO [Suspect]
     Active Substance: IVACAFTOR
     Indication: Cystic fibrosis
     Dosage: 1 TAB IN PM, QD
     Route: 048
     Dates: start: 20201026
  3. AZITHROMYCIN [Concomitant]
     Active Substance: AZITHROMYCIN
  4. CARVEDILOL [Concomitant]
     Active Substance: CARVEDILOL
     Dosage: ONE TABLET, QD
  5. CALCIUM CARBONATE\VITAMIN D [Concomitant]
     Active Substance: CALCIUM CARBONATE\VITAMIN D
     Dosage: TWO TABLETS, BID
  6. CREON [Concomitant]
     Active Substance: PANCRELIPASE AMYLASE\PANCRELIPASE LIPASE\PANCRELIPASE PROTEASE
  7. FLUTICASONE FUROATE\VILANTEROL TRIFENATATE [Concomitant]
     Active Substance: FLUTICASONE FUROATE\VILANTEROL TRIFENATATE
     Dosage: ONE DOSE TO BE INHALED, QD
  8. MIRTAZAPINE [Concomitant]
     Active Substance: MIRTAZAPINE
     Dosage: ONE TABLET AT NIGHT, QD
  9. PARAVIT CF [Concomitant]
     Dosage: TWO CAPSULES, QD
  10. FOLIC ACID [Concomitant]
     Active Substance: FOLIC ACID
     Indication: Vitamin supplementation

REACTIONS (2)
  - Abortion spontaneous [Recovered/Resolved]
  - Exposure during pregnancy [Unknown]

NARRATIVE: CASE EVENT DATE: 20210101
